FAERS Safety Report 7190394-9 (Version None)
Quarter: 2010Q4

REPORT INFORMATION
  Report Type: 
  Country: None (occurrence: None)
  Receive Date: 20101223
  Receipt Date: 20101220
  Transmission Date: 20110411
  Serious: Yes (Other)
  Sender: FDA-Public Use
  Company Number: US-PFIZER INC-2010134738

PATIENT
  Sex: Male

DRUGS (3)
  1. SUTENT [Suspect]
     Indication: METASTATIC RENAL CELL CARCINOMA
     Dosage: 50 MG, 1X/DAY, 1 CAP DAILY, CYCLE 4 WEEKS ON AND 2 OFF
     Dates: start: 20100907, end: 20100928
  2. SUTENT [Suspect]
     Dosage: 25 MG, 1X/DAY X 28 DAYS EVERY 42 DAYS
     Dates: start: 20101021
  3. SUTENT [Suspect]
     Dosage: 37.5 MG, 1X/DAY X 28 DAYS EVERY 42 DAYS

REACTIONS (1)
  - VERTIGO [None]
